FAERS Safety Report 6370897-7 (Version None)
Quarter: 2009Q3

REPORT INFORMATION
  Report Type: 
  Country: None (occurrence: None)
  Receive Date: 20090923
  Receipt Date: 20071003
  Transmission Date: 20100115
  Serious: Yes (Hospitalization, Other)
  Sender: FDA-Public Use
  Company Number: US-ASTRAZENECA-2006UW22567

PATIENT
  Age: 43 Year
  Sex: Female
  Weight: 88.5 kg

DRUGS (31)
  1. SEROQUEL [Suspect]
     Indication: SCHIZOPHRENIA
     Route: 048
     Dates: start: 20001001, end: 20040101
  2. SEROQUEL [Suspect]
     Indication: DEPRESSION
     Route: 048
     Dates: start: 20001001, end: 20040101
  3. SEROQUEL [Suspect]
     Indication: ANXIETY
     Route: 048
     Dates: start: 20001001, end: 20040101
  4. SEROQUEL [Suspect]
     Indication: INSOMNIA
     Route: 048
     Dates: start: 20001001, end: 20040101
  5. SEROQUEL [Suspect]
     Indication: AGITATION
     Route: 048
     Dates: start: 20001001, end: 20040101
  6. SEROQUEL [Suspect]
     Dosage: 25-200MG
     Route: 048
  7. SEROQUEL [Suspect]
     Dosage: 25-200MG
     Route: 048
  8. SEROQUEL [Suspect]
     Dosage: 25-200MG
     Route: 048
  9. SEROQUEL [Suspect]
     Dosage: 25-200MG
     Route: 048
  10. SEROQUEL [Suspect]
     Dosage: 25-200MG
     Route: 048
  11. HALDOL [Concomitant]
  12. RISPERDAL [Concomitant]
  13. THORAZINE [Concomitant]
  14. MIRAZAPAM [Concomitant]
  15. XANAX [Concomitant]
  16. REGLAN [Concomitant]
  17. PROTONIX [Concomitant]
  18. HYDROCHLOROTHIAZIDE [Concomitant]
  19. ACTOS [Concomitant]
  20. MIRTAZAPINE [Concomitant]
  21. ZOFRAN [Concomitant]
  22. PHENERGAN [Concomitant]
  23. COMPAZINE [Concomitant]
  24. MARINOL [Concomitant]
  25. MORPHINE SULFATE INJ [Concomitant]
  26. NITROGLYCERIN [Concomitant]
  27. AMBIEN [Concomitant]
  28. ATIVAN [Concomitant]
  29. VALIUM [Concomitant]
  30. TYLENOL (CAPLET) [Concomitant]
  31. ZOLOFT [Concomitant]

REACTIONS (5)
  - BLOOD TRIGLYCERIDES INCREASED [None]
  - HYPERGLYCAEMIA [None]
  - OBESITY [None]
  - PANCREATITIS [None]
  - PANCREATITIS ACUTE [None]
